FAERS Safety Report 13779521 (Version 1)
Quarter: 2017Q3

REPORT INFORMATION
  Report Type: Spontaneous
  Country: US (occurrence: US)
  Receive Date: 20170721
  Receipt Date: 20170721
  Transmission Date: 20171127
  Serious: No
  Sender: FDA-Public Use
  Company Number: US-MYLANLABS-2016M1047184

PATIENT
  Age: 81 Year
  Sex: Male

DRUGS (1)
  1. OLUX [Suspect]
     Active Substance: CLOBETASOL PROPIONATE
     Indication: SEBORRHOEIC DERMATITIS
     Dosage: ONCE DAILY X 7 DAYS FOLLOWED BY 7 DAYS OFF
     Route: 061

REACTIONS (1)
  - Dermatitis [Unknown]
